FAERS Safety Report 14788737 (Version 2)
Quarter: 2018Q2

REPORT INFORMATION
  Report Type: Spontaneous
  Country: US (occurrence: US)
  Receive Date: 20180423
  Receipt Date: 20180525
  Transmission Date: 20180711
  Serious: No
  Sender: FDA-Public Use
  Company Number: US-ASTRAZENECA-2018SE39298

PATIENT
  Age: 877 Month
  Sex: Male
  Weight: 118.8 kg

DRUGS (1)
  1. BYDUREON [Suspect]
     Active Substance: EXENATIDE
     Indication: TYPE 2 DIABETES MELLITUS
     Route: 058
     Dates: start: 201801, end: 20180412

REACTIONS (8)
  - Injection site mass [Unknown]
  - Circumstance or information capable of leading to medication error [Unknown]
  - Injection site scab [Unknown]
  - Injection site reaction [Unknown]
  - Injection site erythema [Unknown]
  - Drug dispensing error [Unknown]
  - Incorrect dose administered [Unknown]
  - Device malfunction [Unknown]

NARRATIVE: CASE EVENT DATE: 201712
